FAERS Safety Report 20964929 (Version 3)
Quarter: 2022Q3

REPORT INFORMATION
  Report Type: Spontaneous
  Country: US (occurrence: None)
  Receive Date: 20220616
  Receipt Date: 20220729
  Transmission Date: 20221026
  Serious: No
  Sender: FDA-Public Use
  Company Number: 2022A208212

PATIENT
  Age: 78 Year
  Sex: Male
  Weight: 83.9 kg

DRUGS (2)
  1. BUDESONIDE\FORMOTEROL\GLYCOPYRRONIUM [Suspect]
     Active Substance: BUDESONIDE\FORMOTEROL\GLYCOPYRRONIUM
     Indication: Chronic obstructive pulmonary disease
     Dosage: 160 UG/9 UG/4.8 UG, TWO PUFFS TWICE DAILY FOR APPROXIMATELY 1 YEAR
     Route: 055
     Dates: start: 202205, end: 202206
  2. SYMBICORT [Suspect]
     Active Substance: BUDESONIDE\FORMOTEROL FUMARATE DIHYDRATE
     Indication: Chronic obstructive pulmonary disease
     Dosage: TWO PUFFS IN THE MORNING AND EVENING
     Route: 055

REACTIONS (4)
  - Hypoacusis [Unknown]
  - Device use issue [Unknown]
  - Device delivery system issue [Unknown]
  - Therapeutic product effect decreased [Unknown]
